FAERS Safety Report 9261858 (Version 1)
Quarter: 2013Q2

REPORT INFORMATION
  Report Type: Report from Study
  Country: DE (occurrence: DE)
  Receive Date: 20130429
  Receipt Date: 20130429
  Transmission Date: 20140414
  Serious: Yes (Hospitalization)
  Sender: FDA-Public Use
  Company Number: DE-BAXTER-2013BAX014911

PATIENT
  Sex: Male

DRUGS (23)
  1. ENDOXAN 1G [Suspect]
     Indication: B-CELL LYMPHOMA
     Route: 042
     Dates: start: 20130202
  2. ENDOXAN 1G [Suspect]
     Route: 042
     Dates: start: 20130403
  3. RITUXIMAB [Suspect]
     Indication: B-CELL LYMPHOMA
     Route: 042
     Dates: start: 20130129
  4. RITUXIMAB [Suspect]
     Route: 042
     Dates: start: 20130402
  5. DOXORUBICIN [Suspect]
     Indication: B-CELL LYMPHOMA
     Route: 042
     Dates: start: 20130202
  6. DOXORUBICIN [Suspect]
     Route: 042
     Dates: start: 20130403
  7. VINCRISTINE [Suspect]
     Indication: B-CELL LYMPHOMA
     Route: 042
     Dates: start: 20130202
  8. VINCRISTINE [Suspect]
     Route: 042
     Dates: start: 20130403
  9. PREDNISOLONE [Suspect]
     Indication: B-CELL LYMPHOMA
     Route: 048
     Dates: start: 20130202
  10. PREDNISOLONE [Suspect]
     Route: 048
     Dates: start: 20130407
  11. PEGFILGRASTIM [Suspect]
     Indication: B-CELL LYMPHOMA
     Route: 058
     Dates: start: 20130205
  12. PEGFILGRASTIM [Suspect]
     Route: 058
     Dates: start: 20130406
  13. TORASEMID [Concomitant]
     Indication: DIURETIC THERAPY
     Route: 048
  14. ALLOPURINOL [Concomitant]
     Indication: DIURETIC THERAPY
     Route: 048
  15. MIRTAZAPINE [Concomitant]
     Indication: ANTIDEPRESSANT THERAPY
     Route: 048
  16. ESCITALOPRAM OXALATE [Concomitant]
     Indication: ANTIDEPRESSANT THERAPY
     Route: 048
  17. METOCLOPRAMIDE [Concomitant]
     Indication: PAIN
     Route: 048
  18. ASPIRIN [Concomitant]
     Indication: CORONARY ARTERY DISEASE
     Route: 048
  19. PANTOPRAZOL [Concomitant]
     Indication: PROPHYLAXIS AGAINST GASTROINTESTINAL ULCER
     Route: 048
  20. RAMIPRIL [Concomitant]
     Indication: HYPERTENSION
     Route: 048
  21. NEBIVOLOL [Concomitant]
     Indication: HYPERTENSION
     Route: 048
  22. LERCANIDIPINE HYDROCHLORIDE [Concomitant]
     Indication: HYPERTENSION
     Route: 048
  23. TRAMADOL [Concomitant]
     Indication: PAIN
     Dosage: 4 X 30 PER RENATA
     Route: 048

REACTIONS (1)
  - General physical health deterioration [Recovered/Resolved]
